FAERS Safety Report 10477583 (Version 1)
Quarter: 2014Q3

REPORT INFORMATION
  Report Type: Spontaneous
  Country: GR (occurrence: GR)
  Receive Date: 20140926
  Receipt Date: 20140926
  Transmission Date: 20150326
  Serious: Yes (Hospitalization, Other)
  Sender: FDA-Public Use
  Company Number: GR-CIPLA LTD.-2014GR01429

PATIENT
  Age: 80 Year
  Sex: Female

DRUGS (2)
  1. DONEPEZIL [Suspect]
     Active Substance: DONEPEZIL
     Dosage: 10 MG, DAILY
  2. DONEPEZIL [Suspect]
     Active Substance: DONEPEZIL
     Indication: DEMENTIA ALZHEIMER^S TYPE
     Dosage: 30 MG, DAILY

REACTIONS (2)
  - Incorrect dose administered [Unknown]
  - Myoclonus [Recovered/Resolved]
